FAERS Safety Report 24203232 (Version 1)
Quarter: 2024Q3

REPORT INFORMATION
  Report Type: Spontaneous
  Country: US (occurrence: US)
  Receive Date: 20240813
  Receipt Date: 20240813
  Transmission Date: 20241016
  Serious: No
  Sender: Tarsus Pharmaceuticals
  Company Number: US-TARSUS PHARMACEUTICALS-TSP-US-2024-000281

PATIENT
  Sex: Male

DRUGS (2)
  1. XDEMVY [Suspect]
     Active Substance: LOTILANER
     Indication: Eyelid margin crusting
     Dosage: UNK
     Route: 047
     Dates: start: 202405, end: 20240616
  2. XDEMVY [Suspect]
     Active Substance: LOTILANER
     Indication: Pruritus

REACTIONS (1)
  - Instillation site irritation [Recovered/Resolved]

NARRATIVE: CASE EVENT DATE: 20240501
